FAERS Safety Report 6225045-0 (Version None)
Quarter: 2009Q2

REPORT INFORMATION
  Report Type: 
  Country: None (occurrence: None)
  Receive Date: 20090612
  Receipt Date: 20090403
  Transmission Date: 20091009
  Serious: No
  Sender: FDA-Public Use
  Company Number: US-ABBOTT-09P-163-0566664-00

PATIENT
  Sex: Male
  Weight: 161.17 kg

DRUGS (3)
  1. HUMIRA [Suspect]
     Indication: PSORIASIS
     Dates: start: 20090101
  2. LASIX [Concomitant]
     Indication: OEDEMA
     Dosage: 2 PILLS A DAY
  3. POTASSIUM CHLORIDE [Concomitant]
     Indication: DRUG USE FOR UNKNOWN INDICATION
     Dosage: 1 PILL A DAY

REACTIONS (2)
  - ENDODONTIC PROCEDURE [None]
  - PSORIASIS [None]
